FAERS Safety Report 16257759 (Version 2)
Quarter: 2019Q4

REPORT INFORMATION
  Report Type: Spontaneous
  Country: US (occurrence: US)
  Receive Date: 20190430
  Receipt Date: 20191127
  Transmission Date: 20200122
  Serious: No
  Sender: FDA-Public Use
  Company Number: US-ASTRAZENECA-2019SE54179

PATIENT
  Sex: Female
  Weight: 59 kg

DRUGS (4)
  1. NEXIUM [Suspect]
     Active Substance: ESOMEPRAZOLE MAGNESIUM
     Indication: HIATUS HERNIA
     Dosage: ESOMEPRAZOLE CAPSULES-THE AUTHORIZED GENERIC FOR PERRIGO
     Route: 048
     Dates: start: 201903
  2. NEXIUM [Suspect]
     Active Substance: ESOMEPRAZOLE MAGNESIUM
     Indication: HIATUS HERNIA
     Dosage: ESOMEPRAZOLE CAPSULES-THE AUTHORIZED GENERIC FOR PERRIGO
     Route: 048
     Dates: end: 201903
  3. NEXIUM [Suspect]
     Active Substance: ESOMEPRAZOLE MAGNESIUM
     Indication: HIATUS HERNIA
     Dosage: ESOMEPRAZOLE CAPSULES-THE AUTHORIZED GENERIC FOR PERRIGO
     Route: 048
     Dates: start: 201904
  4. NEXIUM [Suspect]
     Active Substance: ESOMEPRAZOLE MAGNESIUM
     Indication: HIATUS HERNIA
     Dosage: AT FIRST SHE TOOK THEM INTERMITTENTLY, BUT THEN ALMOST DAILY FROM 2010 UNTIL MAR 2019, WAS USING ...
     Route: 048
     Dates: end: 201903

REACTIONS (2)
  - Intentional product misuse [Unknown]
  - Rash pruritic [Recovered/Resolved]

NARRATIVE: CASE EVENT DATE: 201903
